FAERS Safety Report 15294252 (Version 1)
Quarter: 2018Q3

REPORT INFORMATION
  Report Type: Spontaneous
  Country: US (occurrence: US)
  Receive Date: 20180807
  Receipt Date: 20180807
  Transmission Date: 20181010
  Serious: Yes (Death, Hospitalization)
  Sender: FDA-Public Use
  Company Number: None

PATIENT
  Age: 76 Year
  Sex: Male
  Weight: 112.5 kg

DRUGS (13)
  1. MYLANTA [Concomitant]
     Active Substance: ALUMINUM HYDROXIDE\DIMETHICONE\MAGNESIUM HYDROXIDE
  2. QUINIPRIL [Concomitant]
  3. ZOFRAN [Concomitant]
     Active Substance: ONDANSETRON HYDROCHLORIDE
  4. DURAGESIC [Suspect]
     Active Substance: FENTANYL
     Indication: PAIN
     Dosage: OTHER STRENGTH:MCG/HR;QUANTITY:1 PATCH(ES);OTHER FREQUENCY:EVERY 72 HOURS;?
     Route: 062
     Dates: start: 20150414, end: 20150423
  5. ATIVAN [Concomitant]
     Active Substance: LORAZEPAM
  6. DULCOLAX NOS [Concomitant]
     Active Substance: BISACODYL OR DOCUSATE SODIUM
  7. SUBLIMAZE [Suspect]
     Active Substance: FENTANYL CITRATE
     Indication: PAIN
     Dosage: ?          OTHER STRENGTH:MCG;?
     Route: 058
     Dates: start: 20150414, end: 20150423
  8. GABAPENTIN. [Concomitant]
     Active Substance: GABAPENTIN
  9. NISTATIN [Concomitant]
     Active Substance: NYSTATIN
  10. TEMAZEPAM. [Concomitant]
     Active Substance: TEMAZEPAM
  11. REMERON [Concomitant]
     Active Substance: MIRTAZAPINE
  12. TYLENOL [Concomitant]
     Active Substance: ACETAMINOPHEN
  13. METRONIDAZOLE. [Concomitant]
     Active Substance: METRONIDAZOLE

REACTIONS (1)
  - Death [None]

NARRATIVE: CASE EVENT DATE: 20150414
